FAERS Safety Report 7411399-6 (Version None)
Quarter: 2011Q2

REPORT INFORMATION
  Report Type: 
  Country: None (occurrence: None)
  Receive Date: 20110413
  Receipt Date: 20100721
  Transmission Date: 20111010
  Serious: Yes (Hospitalization, Other)
  Sender: FDA-Public Use
  Company Number: US-BRISTOL-MYERS SQUIBB COMPANY-15198831

PATIENT
  Age: 67 Year
  Sex: Male

DRUGS (7)
  1. ATIVAN [Concomitant]
  2. FENTANYL-100 [Concomitant]
  3. ERBITUX [Suspect]
     Indication: HEAD AND NECK CANCER
     Route: 042
     Dates: start: 20100526
  4. LOVENOX [Concomitant]
  5. LOPRESSOR [Concomitant]
  6. ZOLOFT [Concomitant]
  7. RADIATION THERAPY [Suspect]

REACTIONS (1)
  - NEOPLASM MALIGNANT [None]
